FAERS Safety Report 6596240-6 (Version None)
Quarter: 2010Q1

REPORT INFORMATION
  Report Type: 
  Country: None (occurrence: None)
  Receive Date: 20100223
  Receipt Date: 20100209
  Transmission Date: 20100710
  Serious: Yes (Other)
  Sender: FDA-Public Use
  Company Number: US-ROCHE-685609

PATIENT
  Sex: Female

DRUGS (3)
  1. XENICAL [Suspect]
     Indication: WEIGHT CONTROL
     Route: 065
     Dates: end: 20060101
  2. ALLI [Suspect]
     Indication: DRUG USE FOR UNKNOWN INDICATION
     Route: 065
  3. NIASPAN [Concomitant]

REACTIONS (1)
  - BLOOD TRIGLYCERIDES INCREASED [None]
